FAERS Safety Report 6992689-8 (Version None)
Quarter: 2010Q3

REPORT INFORMATION
  Report Type: 
  Country: None (occurrence: None)
  Receive Date: 20100917
  Receipt Date: 20100910
  Transmission Date: 20110219
  Serious: Yes (Life-Threatening)
  Sender: FDA-Public Use
  Company Number: US-MERCK-1006USA00940

PATIENT
  Age: 56 Year
  Sex: Female
  Weight: 55 kg

DRUGS (4)
  1. COZAAR [Suspect]
     Indication: CARDIAC FLUTTER
     Route: 048
     Dates: start: 20100101, end: 20100101
  2. COZAAR [Suspect]
     Route: 048
     Dates: start: 20100603
  3. COZAAR [Suspect]
     Route: 048
     Dates: start: 20060101, end: 20100101
  4. COZAAR [Suspect]
     Route: 048
     Dates: start: 20100501, end: 20100601

REACTIONS (5)
  - ABDOMINAL PAIN UPPER [None]
  - BACK PAIN [None]
  - PAIN IN EXTREMITY [None]
  - PALPITATIONS [None]
  - RENAL PAIN [None]
